FAERS Safety Report 18507650 (Version 1)
Quarter: 2020Q4

REPORT INFORMATION
  Report Type: Spontaneous
  Country: US (occurrence: US)
  Receive Date: 20201116
  Receipt Date: 20201116
  Transmission Date: 20210114
  Serious: No
  Sender: FDA-Public Use
  Company Number: US-LANNETT COMPANY, INC.-US-2020LAN000256

PATIENT
  Sex: Male

DRUGS (1)
  1. VALPROIC ACID. [Suspect]
     Active Substance: VALPROIC ACID
     Indication: BIPOLAR DISORDER
     Dosage: 10 ML IN THE MORNING AND 5 ML AT NIGHT, BID
     Route: 048

REACTIONS (4)
  - Skin wound [Unknown]
  - Therapeutic response unexpected [Unknown]
  - Off label use [Unknown]
  - Pruritus [Not Recovered/Not Resolved]
